FAERS Safety Report 12808394 (Version 3)
Quarter: 2016Q4

REPORT INFORMATION
  Report Type: Report from Study
  Country: BR (occurrence: BR)
  Receive Date: 20161004
  Receipt Date: 20161024
  Transmission Date: 20170207
  Serious: Yes (Death, Life-Threatening, Hospitalization, Other)
  Sender: FDA-Public Use
  Company Number: BR-AMGEN-BRANI2016132461

PATIENT
  Age: 32 Year
  Sex: Male
  Weight: 100 kg

DRUGS (9)
  1. BLINATUMOMAB [Suspect]
     Active Substance: BLINATUMOMAB
     Dosage: 28 MUG, CONTINOUS INFUSION
     Route: 042
     Dates: end: 20161001
  2. FLUCONAZOLE. [Concomitant]
     Active Substance: FLUCONAZOLE
     Dosage: 300 MG, QD
     Route: 048
     Dates: start: 20160914
  3. BACTRIM [Concomitant]
     Active Substance: SULFAMETHOXAZOLE\TRIMETHOPRIM
     Dosage: 1600+ 300MG, Q6H
     Route: 042
     Dates: start: 20160927
  4. OMEPRAZOLE. [Concomitant]
     Active Substance: OMEPRAZOLE
     Dosage: 20 MG, QD
     Route: 048
     Dates: start: 20160914
  5. ALLOPURINOL. [Concomitant]
     Active Substance: ALLOPURINOL
     Dosage: 300 MG, QD
     Route: 048
     Dates: start: 20160914
  6. ACYCLOVIR. [Concomitant]
     Active Substance: ACYCLOVIR
     Dosage: 400 MG, Q12H
     Route: 048
     Dates: start: 20160914
  7. BLINATUMOMAB [Suspect]
     Active Substance: BLINATUMOMAB
     Indication: B PRECURSOR TYPE ACUTE LEUKAEMIA
     Dosage: 9 MUG, CONTINOUS INFUSION
     Route: 042
     Dates: start: 20160921
  8. BACTRIM [Concomitant]
     Active Substance: SULFAMETHOXAZOLE\TRIMETHOPRIM
     Dosage: 800 + 160 MG, QOD
     Route: 048
     Dates: start: 20160914
  9. CEFEPIME [Concomitant]
     Active Substance: CEFEPIME HYDROCHLORIDE
     Dosage: 2 G, Q8H
     Route: 042
     Dates: start: 20160914

REACTIONS (9)
  - Pulmonary haemorrhage [Fatal]
  - Platelet count decreased [Not Recovered/Not Resolved]
  - Bronchospasm [Recovered/Resolved]
  - Aspartate aminotransferase increased [Recovering/Resolving]
  - International normalised ratio increased [Recovering/Resolving]
  - Lung infection [Not Recovered/Not Resolved]
  - Acute kidney injury [Fatal]
  - Hypertension [Recovered/Resolved]
  - Neutropenia [Recovered/Resolved]

NARRATIVE: CASE EVENT DATE: 201609
